FAERS Safety Report 9899003 (Version 1)
Quarter: 2014Q1

REPORT INFORMATION
  Report Type: Spontaneous
  Country: RU (occurrence: RU)
  Receive Date: 20140214
  Receipt Date: 20140214
  Transmission Date: 20141002
  Serious: Yes (Other)
  Sender: FDA-Public Use
  Company Number: RU-VIIV HEALTHCARE LIMITED-B0968977A

PATIENT
  Sex: Female

DRUGS (3)
  1. COMBIVIR [Suspect]
     Indication: HIV INFECTION
     Route: 065
     Dates: start: 2008, end: 201401
  2. KIVEXA [Suspect]
     Indication: HIV INFECTION
     Route: 065
     Dates: start: 20140114
  3. REYATAZ [Suspect]
     Indication: HIV INFECTION
     Route: 065
     Dates: start: 2008

REACTIONS (6)
  - Lipodystrophy acquired [Unknown]
  - Chills [Unknown]
  - Flatulence [Unknown]
  - Diarrhoea [Unknown]
  - Rhinorrhoea [Not Recovered/Not Resolved]
  - Herpes virus infection [Not Recovered/Not Resolved]
